FAERS Safety Report 10781026 (Version 3)
Quarter: 2015Q2

REPORT INFORMATION
  Report Type: Spontaneous
  Country: US (occurrence: US)
  Receive Date: 20150210
  Receipt Date: 20150402
  Transmission Date: 20150821
  Serious: No
  Sender: FDA-Public Use
  Company Number: US-PFIZER INC-2015049826

PATIENT
  Age: 62 Year
  Sex: Female
  Weight: 102 kg

DRUGS (8)
  1. LYRICA [Suspect]
     Active Substance: PREGABALIN
     Indication: SYSTEMIC LUPUS ERYTHEMATOSUS
     Dosage: 100 MG, 2X/DAY
  2. NOVOLIN [Concomitant]
     Active Substance: INSULIN HUMAN
     Dosage: 6 IU, UNK
  3. LYRICA [Suspect]
     Active Substance: PREGABALIN
     Indication: FIBROMYALGIA
  4. LYRICA [Suspect]
     Active Substance: PREGABALIN
     Indication: MYALGIA
  5. LYRICA [Suspect]
     Active Substance: PREGABALIN
     Indication: INFLAMMATION
     Dosage: 50 MG, 2X/DAY
  6. LYRICA [Suspect]
     Active Substance: PREGABALIN
     Indication: DIABETIC NEUROPATHY
  7. LYRICA [Suspect]
     Active Substance: PREGABALIN
     Indication: HAEMOLYTIC ANAEMIA
  8. LYRICA [Suspect]
     Active Substance: PREGABALIN
     Indication: NEURALGIA

REACTIONS (4)
  - Condition aggravated [Unknown]
  - Somnolence [Not Recovered/Not Resolved]
  - Inflammation [Unknown]
  - Blood glucose increased [Not Recovered/Not Resolved]
